APPROVED DRUG PRODUCT: TRICHLORMETHIAZIDE
Active Ingredient: TRICHLORMETHIAZIDE
Strength: 4MG
Dosage Form/Route: TABLET;ORAL
Application: A087005 | Product #001
Applicant: PAR PHARMACEUTICAL INC
Approved: Approved Prior to Jan 1, 1982 | RLD: No | RS: No | Type: DISCN